FAERS Safety Report 11925442 (Version 1)
Quarter: 2016Q1

REPORT INFORMATION
  Report Type: Spontaneous
  Country: US (occurrence: US)
  Receive Date: 20160118
  Receipt Date: 20160118
  Transmission Date: 20160526
  Serious: Yes (Hospitalization)
  Sender: FDA-Public Use
  Company Number: US-DSJP-DSU-2015-134297

PATIENT

DRUGS (8)
  1. TRIBENZOR [Suspect]
     Active Substance: AMLODIPINE BESYLATE\HYDROCHLOROTHIAZIDE\OLMESARTAN MEDOXOMIL
     Indication: HYPERTENSION
     Dosage: 40-5-25 MG 1 TABLET, DAILY
     Route: 048
     Dates: start: 20121030, end: 20121212
  2. SAVELLA [Concomitant]
     Active Substance: MILNACIPRAN HYDROCHLORIDE
     Indication: FIBROMYALGIA
     Dosage: 50 MG, QD
     Dates: start: 20120510
  3. BENICAR HCT [Suspect]
     Active Substance: HYDROCHLOROTHIAZIDE\OLMESARTAN MEDOXOMIL
     Dosage: 40-12.5 MG, ONCE DAILY
     Route: 048
     Dates: start: 20130307, end: 201506
  4. TRAMADOL. [Concomitant]
     Active Substance: TRAMADOL
     Indication: ANALGESIC THERAPY
     Dosage: 50 MG, PRN
     Dates: start: 20100101
  5. HYDROXYCHLOROQUINE [Concomitant]
     Active Substance: HYDROXYCHLOROQUINE
     Indication: RHEUMATOID ARTHRITIS
     Dosage: 2 MG, BID
     Dates: start: 20100302
  6. BENICAR HCT [Suspect]
     Active Substance: HYDROCHLOROTHIAZIDE\OLMESARTAN MEDOXOMIL
     Indication: HYPERTENSION
     Dosage: UNK
     Dates: start: 20121112
  7. SAVELLA [Concomitant]
     Active Substance: MILNACIPRAN HYDROCHLORIDE
     Indication: RHEUMATOID ARTHRITIS
  8. TIZANIDINE. [Concomitant]
     Active Substance: TIZANIDINE
     Indication: MUSCLE RELAXANT THERAPY
     Dosage: 4 MG, QD
     Dates: start: 20120913

REACTIONS (14)
  - Renal tubular acidosis [Unknown]
  - Urosepsis [Unknown]
  - Metabolic acidosis [Recovered/Resolved]
  - Anxiety [Unknown]
  - Microcytic anaemia [Unknown]
  - Orthostatic hypotension [Unknown]
  - Pancreatitis acute [Unknown]
  - Gastrointestinal haemorrhage [Recovered/Resolved]
  - Pyelonephritis acute [Unknown]
  - Headache [Recovered/Resolved]
  - Malabsorption [Unknown]
  - Chronic gastritis [Recovered/Resolved]
  - Acute kidney injury [Unknown]
  - Irritable bowel syndrome [Unknown]

NARRATIVE: CASE EVENT DATE: 201306
